FAERS Safety Report 11177037 (Version 1)
Quarter: 2015Q2

REPORT INFORMATION
  Report Type: Spontaneous
  Country: GB (occurrence: None)
  Receive Date: 20150608
  Receipt Date: 20150608
  Transmission Date: 20150821
  Serious: Yes (Other)
  Sender: FDA-Public Use
  Company Number: GB-LHC-2015063

PATIENT
  Age: 27 Year
  Sex: Male

DRUGS (1)
  1. NITROUS OXIDE (GENERIC) (NITROUS OXIDE) (***) (NITROUS OXIDE) (VERUM) [Suspect]
     Active Substance: NITROUS OXIDE
     Route: 055

REACTIONS (9)
  - Muscular weakness [None]
  - Hypotonia [None]
  - Demyelinating polyneuropathy [None]
  - Paraplegia [None]
  - Intentional self-injury [None]
  - Muscle spasms [None]
  - Intentional product misuse [None]
  - Vitamin B12 decreased [None]
  - Sensory loss [None]
